FAERS Safety Report 9551579 (Version 1)
Quarter: 2013Q3

REPORT INFORMATION
  Report Type: Spontaneous
  Country: US (occurrence: None)
  Receive Date: 20130724
  Receipt Date: 20130724
  Transmission Date: 20140515
  Serious: Yes (Other)
  Sender: FDA-Public Use
  Company Number: PHEH2010US003922

PATIENT
  Age: 48 Year
  Sex: Male

DRUGS (3)
  1. GLEEVEC [Suspect]
     Indication: GASTROINTESTINAL STROMAL TUMOUR
     Route: 048
     Dates: start: 200703, end: 200902
  2. ZOLOFT (SERTRALINE HYDROCHLORIDE) [Concomitant]
  3. LIPITOR (ATORVASTATIN CALCIUM) [Concomitant]

REACTIONS (6)
  - Intestinal obstruction [None]
  - Skin disorder [None]
  - Nausea [None]
  - Diarrhoea [None]
  - Postoperative adhesion [None]
  - Abdominal pain [None]
